FAERS Safety Report 14066284 (Version 1)
Quarter: 2017Q4

REPORT INFORMATION
  Report Type: Report from Study
  Country: CA (occurrence: CA)
  Receive Date: 20171009
  Receipt Date: 20171009
  Transmission Date: 20180321
  Serious: Yes (Other)
  Sender: FDA-Public Use
  Company Number: CA-JNJFOC-20171006525

PATIENT
  Sex: Male

DRUGS (4)
  1. METHOTREXATE. [Concomitant]
     Active Substance: METHOTREXATE
     Dosage: STRENGTH = 2.5 MG
     Route: 048
  2. EURO FOLIC [Concomitant]
     Dosage: STRENGTH = 5 MG
     Route: 048
  3. REMICADE [Suspect]
     Active Substance: INFLIXIMAB
     Indication: RHEUMATOID ARTHRITIS
     Dosage: STRENGTH = 100 MG
     Route: 042
  4. D-TABS [Concomitant]
     Active Substance: CHOLECALCIFEROL
     Dosage: STRENGTH = 10000 IU
     Route: 048

REACTIONS (1)
  - Malignant melanoma [Not Recovered/Not Resolved]
